FAERS Safety Report 4511827-X (Version None)
Quarter: 2004Q4

REPORT INFORMATION
  Report Type: 
  Country: None (occurrence: None)
  Receive Date: 20041123
  Receipt Date: 20041115
  Transmission Date: 20050328
  Serious: Yes (Other)
  Sender: FDA-Public Use
  Company Number: USA-2004-0017734

PATIENT
  Sex: Male

DRUGS (2)
  1. OXYCONTIN [Suspect]
     Indication: PAIN
     Dosage: 10 MG. DAILY; 240 MG DAILY
     Dates: end: 20040101
  2. OXYCONTIN [Suspect]
     Indication: PAIN
     Dosage: 10 MG. DAILY; 240 MG DAILY
     Dates: start: 20010101

REACTIONS (10)
  - COLD SWEAT [None]
  - DRUG ABUSER [None]
  - DRUG DEPENDENCE [None]
  - DRUG WITHDRAWAL SYNDROME [None]
  - FEELING OF DESPAIR [None]
  - MEDICATION ERROR [None]
  - MEMORY IMPAIRMENT [None]
  - SUICIDAL IDEATION [None]
  - VOMITING PROJECTILE [None]
  - WEIGHT DECREASED [None]
